FAERS Safety Report 10421847 (Version 1)
Quarter: 2014Q3

REPORT INFORMATION
  Report Type: Spontaneous
  Country: JP (occurrence: JP)
  Receive Date: 20140901
  Receipt Date: 20140901
  Transmission Date: 20150326
  Serious: Yes (Hospitalization)
  Sender: FDA-Public Use
  Company Number: JP-JNJFOC-20140822163

PATIENT
  Age: 50 Year
  Sex: Female

DRUGS (4)
  1. DOXIL [Suspect]
     Active Substance: DOXORUBICIN HYDROCHLORIDE
     Indication: PRODUCT USED FOR UNKNOWN INDICATION
     Dosage: 1COURSE
     Route: 042
     Dates: start: 201406, end: 201406
  2. AVASTIN [Suspect]
     Active Substance: BEVACIZUMAB
     Indication: PRODUCT USED FOR UNKNOWN INDICATION
     Route: 050
     Dates: start: 2014
  3. DOXIL [Suspect]
     Active Substance: DOXORUBICIN HYDROCHLORIDE
     Indication: PRODUCT USED FOR UNKNOWN INDICATION
     Dosage: 2 COURSE
     Route: 042
     Dates: start: 201407, end: 201407
  4. DOXIL [Suspect]
     Active Substance: DOXORUBICIN HYDROCHLORIDE
     Indication: PRODUCT USED FOR UNKNOWN INDICATION
     Dosage: 3 COURSE
     Route: 042
     Dates: start: 2014, end: 2014

REACTIONS (4)
  - Weight decreased [Not Recovered/Not Resolved]
  - Malaise [Unknown]
  - Nausea [Not Recovered/Not Resolved]
  - Pigmentation disorder [Not Recovered/Not Resolved]

NARRATIVE: CASE EVENT DATE: 2014
